FAERS Safety Report 23761213 (Version 2)
Quarter: 2024Q2

REPORT INFORMATION
  Report Type: Spontaneous
  Country: SE (occurrence: SE)
  Receive Date: 20240419
  Receipt Date: 20240607
  Transmission Date: 20240716
  Serious: Yes (Hospitalization)
  Sender: FDA-Public Use
  Company Number: None

PATIENT
  Age: 89 Year
  Sex: Male

DRUGS (5)
  1. PRADAXA [Suspect]
     Active Substance: DABIGATRAN ETEXILATE MESYLATE
     Indication: Atrial fibrillation
     Dates: end: 20240315
  2. RISPERIDONE [Concomitant]
     Active Substance: RISPERIDONE
     Indication: Product used for unknown indication
  3. KLORHEXIDIN [Concomitant]
     Indication: Product used for unknown indication
  4. lnstillagel [Concomitant]
     Indication: Product used for unknown indication
     Dosage: 22.9 MILLIGRAM PER MILLILITRE(MG/ML)
  5. DONEPEZIL [Concomitant]
     Active Substance: DONEPEZIL\DONEPEZIL HYDROCHLORIDE
     Indication: Product used for unknown indication

REACTIONS (3)
  - Anticoagulation drug level increased [Recovered/Resolved]
  - Acute kidney injury [Unknown]
  - Haematuria [Recovered/Resolved]

NARRATIVE: CASE EVENT DATE: 20240301
